FAERS Safety Report 21908280 (Version 1)
Quarter: 2023Q1

REPORT INFORMATION
  Report Type: Spontaneous
  Country: US (occurrence: None)
  Receive Date: 20230124
  Receipt Date: 20230124
  Transmission Date: 20230418
  Serious: No
  Sender: FDA-Public Use
  Company Number: None

PATIENT
  Age: 54 Year
  Sex: Female

DRUGS (2)
  1. BUPROPION HYDROCHLORIDE EXTENDED RELEASE [Suspect]
     Active Substance: BUPROPION HYDROCHLORIDE
     Dates: start: 20230124, end: 20230124
  2. NALTREXONE [Suspect]
     Active Substance: NALTREXONE

REACTIONS (3)
  - Vision blurred [None]
  - Nausea [None]
  - Disorientation [None]

NARRATIVE: CASE EVENT DATE: 20230124
